FAERS Safety Report 6111194-4 (Version None)
Quarter: 2009Q1

REPORT INFORMATION
  Report Type: 
  Country: None (occurrence: None)
  Receive Date: 20090309
  Receipt Date: 20090302
  Transmission Date: 20090719
  Serious: Yes (Death)
  Sender: FDA-Public Use
  Company Number: CHNY2009DE00612

PATIENT

DRUGS (2)
  1. CLEMASTINE FUMARATE [Suspect]
     Dosage: ORAL
     Route: 048
  2. ZOMETA [Concomitant]

REACTIONS (2)
  - DRUG CHEMICAL INCOMPATIBILITY [None]
  - DRUG PRESCRIBING ERROR [None]
